FAERS Safety Report 6965125-5 (Version None)
Quarter: 2010Q3

REPORT INFORMATION
  Report Type: 
  Country: None (occurrence: None)
  Receive Date: 20100903
  Receipt Date: 20100825
  Transmission Date: 20110219
  Serious: Yes (Hospitalization)
  Sender: FDA-Public Use
  Company Number: FR-PFIZER INC-2010107111

PATIENT
  Age: 75 Year
  Sex: Female

DRUGS (1)
  1. INSPRA [Suspect]
     Dosage: 25 MG, 2X/DAY
     Route: 048
     Dates: start: 20100601, end: 20100601

REACTIONS (2)
  - HYPERKALAEMIA [None]
  - RENAL FAILURE [None]
